FAERS Safety Report 12354054 (Version 1)
Quarter: 2016Q2

REPORT INFORMATION
  Report Type: Spontaneous
  Country: HR (occurrence: HR)
  Receive Date: 20160511
  Receipt Date: 20160511
  Transmission Date: 20160815
  Serious: Yes (Other)
  Sender: FDA-Public Use
  Company Number: PHHY2016HR062041

PATIENT
  Sex: Female

DRUGS (1)
  1. EVEROLIMUS [Suspect]
     Active Substance: EVEROLIMUS
     Indication: PRODUCT USED FOR UNKNOWN INDICATION
     Dosage: 10 MG, QD
     Route: 065
     Dates: start: 201406

REACTIONS (9)
  - Mucosal inflammation [Unknown]
  - Dysgeusia [Unknown]
  - Decreased appetite [Unknown]
  - Erosive oesophagitis [Unknown]
  - Arthralgia [Unknown]
  - Abdominal pain upper [Unknown]
  - Fatigue [Unknown]
  - Aphthous ulcer [Unknown]
  - Oedema peripheral [Unknown]

NARRATIVE: CASE EVENT DATE: 201512
